FAERS Safety Report 10257225 (Version 1)
Quarter: 2014Q2

REPORT INFORMATION
  Report Type: Spontaneous
  Country: US (occurrence: None)
  Receive Date: 20140623
  Receipt Date: 20140623
  Transmission Date: 20141212
  Serious: Yes (Other)
  Sender: FDA-Public Use
  Company Number: None

PATIENT
  Age: 65 Year
  Sex: Male

DRUGS (2)
  1. ECONAZOLE NITRATE CREAM 1% [Suspect]
     Indication: TINEA PEDIS
     Dosage: 85 GRAM TUBE, TWICE DAILY, APPLIED TO A SURFACE, USUALLY THE SKIN
     Dates: start: 20140613, end: 20140617
  2. PRILOSEC [Concomitant]

REACTIONS (4)
  - Erythema [None]
  - Skin exfoliation [None]
  - Pruritus [None]
  - Product substitution issue [None]
